FAERS Safety Report 4741616-2 (Version None)
Quarter: 2005Q3

REPORT INFORMATION
  Report Type: 
  Country: None (occurrence: None)
  Receive Date: 20050801
  Receipt Date: 20050626
  Transmission Date: 20060218
  Serious: No
  Sender: FDA-Public Use
  Company Number: 2005PV000135

PATIENT
  Age: 71 Year
  Sex: Male
  Weight: 95.2554 kg

DRUGS (12)
  1. BYETTA [Suspect]
     Indication: DIABETES MELLITUS NON-INSULIN-DEPENDENT
     Dosage: 5 UG; BID; SC
     Route: 058
     Dates: start: 20050624
  2. GLUCOTROL [Concomitant]
  3. METFORMIN [Concomitant]
  4. AVANDIA [Concomitant]
  5. LANTUS [Concomitant]
  6. CARDIZEM CD [Concomitant]
  7. PREVACID [Concomitant]
  8. ZETIA [Concomitant]
  9. LIPITOR [Concomitant]
  10. AVAPRO [Concomitant]
  11. PLAVIX [Concomitant]
  12. ASPIRIN [Concomitant]

REACTIONS (1)
  - NAUSEA [None]
